FAERS Safety Report 6110512-0 (Version None)
Quarter: 2009Q1

REPORT INFORMATION
  Report Type: 
  Country: None (occurrence: None)
  Receive Date: 20090310
  Receipt Date: 20090310
  Transmission Date: 20090719
  Serious: Yes (Hospitalization, Other)
  Sender: FDA-Public Use
  Company Number: IL-ROXANE LABORATORIES, INC.-2009-RO-00169RO

PATIENT
  Age: 20 Year
  Sex: Female

DRUGS (4)
  1. FLECAINIDE ACETATE [Suspect]
     Indication: ELECTROCARDIOGRAM QT PROLONGED
     Dosage: 150MG
     Route: 048
  2. FLECAINIDE ACETATE [Suspect]
     Dosage: 200MG
  3. FLECAINIDE ACETATE [Suspect]
     Dosage: 400MG
  4. BISOPROLOL [Suspect]
     Dosage: 2.5MG

REACTIONS (4)
  - ATRIAL TACHYCARDIA [None]
  - BRUGADA SYNDROME [None]
  - DEVICE RELATED INFECTION [None]
  - SYNCOPE [None]
